FAERS Safety Report 9916612 (Version 1)
Quarter: 2014Q1

REPORT INFORMATION
  Report Type: Spontaneous
  Country: CZ (occurrence: CZ)
  Receive Date: 20140221
  Receipt Date: 20140221
  Transmission Date: 20141002
  Serious: Yes (Death)
  Sender: FDA-Public Use
  Company Number: CZ-AMGEN-CZESP2014011985

PATIENT
  Age: 61 Year
  Sex: Female

DRUGS (2)
  1. NEUPOGEN [Suspect]
     Indication: PRODUCT USED FOR UNKNOWN INDICATION
     Dosage: UNK
     Route: 065
  2. TEMOZOLOMIDE [Concomitant]
     Indication: GLIOBLASTOMA MULTIFORME
     Dosage: UNK

REACTIONS (4)
  - Neutropenia [Fatal]
  - Infection [Fatal]
  - Thrombocytopenia [Fatal]
  - Drug ineffective [Unknown]
